FAERS Safety Report 14349129 (Version 1)
Quarter: 2018Q1

REPORT INFORMATION
  Report Type: Spontaneous
  Country: US (occurrence: US)
  Receive Date: 20180104
  Receipt Date: 20180104
  Transmission Date: 20180509
  Serious: Yes (Other)
  Sender: FDA-Public Use
  Company Number: US-TEVA-809116ACC

PATIENT

DRUGS (1)
  1. VENLAFAXINE [Suspect]
     Active Substance: VENLAFAXINE HYDROCHLORIDE
     Route: 065

REACTIONS (11)
  - Pneumothorax [Unknown]
  - Cough [Unknown]
  - Dyspnoea [Unknown]
  - Hyperhidrosis [Unknown]
  - Blood pressure increased [Unknown]
  - Pruritus [Unknown]
  - Chest pain [Unknown]
  - Dizziness [Unknown]
  - Vision blurred [Unknown]
  - Aphonia [Unknown]
  - Dysphonia [Unknown]
